FAERS Safety Report 23370383 (Version 1)
Quarter: 2024Q1

REPORT INFORMATION
  Report Type: Spontaneous
  Country: US (occurrence: US)
  Receive Date: 20240105
  Receipt Date: 20240105
  Transmission Date: 20240410
  Serious: No
  Sender: FDA-Public Use
  Company Number: US-SA-SAC20231227000661

PATIENT
  Age: 58 Year
  Sex: Male

DRUGS (3)
  1. DUPIXENT [Suspect]
     Active Substance: DUPILUMAB
     Indication: Dermatitis atopic
     Dosage: 300 MG, QOW
     Route: 058
  2. IVERMECTIN [Suspect]
     Active Substance: IVERMECTIN
     Indication: Infection parasitic
     Dosage: UNK
     Dates: start: 202311
  3. PERMETHRIN [Suspect]
     Active Substance: PERMETHRIN
     Indication: Infection parasitic
     Dosage: UNK
     Dates: start: 202311

REACTIONS (3)
  - Infection parasitic [Unknown]
  - Swelling [Recovering/Resolving]
  - Pruritus [Recovering/Resolving]
